FAERS Safety Report 11298381 (Version 1)
Quarter: 2015Q3

REPORT INFORMATION
  Report Type: Spontaneous
  Country: US (occurrence: US)
  Receive Date: 20150722
  Receipt Date: 20150722
  Transmission Date: 20151125
  Serious: No
  Sender: FDA-Public Use
  Company Number: US-ELI_LILLY_AND_COMPANY-US201109007200

PATIENT
  Age: 79 Year
  Sex: Male

DRUGS (1)
  1. HUMATROPE [Suspect]
     Active Substance: SOMATROPIN
     Indication: HYPOTHALAMO-PITUITARY DISORDER
     Dosage: 20 MG, QD
     Route: 065
     Dates: start: 2005

REACTIONS (3)
  - Visual impairment [Unknown]
  - Incorrect dose administered [Unknown]
  - Cataract operation [Unknown]

NARRATIVE: CASE EVENT DATE: 201010
